FAERS Safety Report 7913511-9 (Version None)
Quarter: 2011Q4

REPORT INFORMATION
  Report Type: 
  Country: None (occurrence: None)
  Receive Date: 20111110
  Receipt Date: 20111026
  Transmission Date: 20120403
  Serious: Yes (Life-Threatening)
  Sender: FDA-Public Use
  Company Number: 1000025167

PATIENT
  Age: 94 Year
  Sex: Male

DRUGS (6)
  1. RAMIPRIL [Suspect]
     Indication: HYPERTENSION
     Dosage: 1 DOSAGE FORM (1 DOSAGE FORMS, 1 IN 1 D),ORAL
     Route: 048
  2. FUROSEMIDE [Concomitant]
  3. ESCITALOPRAM [Suspect]
     Indication: MAJOR DEPRESSION
     Dosage: ORAL
     Route: 048
     Dates: start: 20110501
  4. DIGOXIN [Suspect]
     Indication: ATRIAL FIBRILLATION
     Dosage: 0.8571 DOSAGE FORM (1 DOSAGE FORMS,6 IN 1 WK),ORAL
     Route: 048
  5. BISOPROLOL FUMARATE [Suspect]
     Indication: CARDIAC FAILURE
     Dosage: 5 MG (2.5 MG, 2 IN 1 D),ORAL
     Route: 048
  6. KARDEGIC (ACETYLSALICYLATE  LYSINE)(ACETYLSALICYLATE LYSINE) [Concomitant]

REACTIONS (6)
  - MULTIPLE DRUG OVERDOSE [None]
  - BRADYCARDIA [None]
  - CARDIOGENIC SHOCK [None]
  - HYPERKALAEMIA [None]
  - RENAL FAILURE ACUTE [None]
  - CARDIOACTIVE DRUG LEVEL DECREASED [None]
